FAERS Safety Report 12426099 (Version 4)
Quarter: 2016Q3

REPORT INFORMATION
  Report Type: Report from Study
  Country: AU (occurrence: AU)
  Receive Date: 20160601
  Receipt Date: 20160904
  Transmission Date: 20161109
  Serious: Yes (Death, Hospitalization, Other)
  Sender: FDA-Public Use
  Company Number: PHHY2016AU074681

PATIENT
  Age: 81 Year
  Sex: Female

DRUGS (1)
  1. SANDOSTATIN LAR DEPOT [Suspect]
     Active Substance: OCTREOTIDE ACETATE
     Indication: CARCINOID SYNDROME
     Dosage: 30 MG, UNK
     Route: 030

REACTIONS (7)
  - Respiratory distress [Unknown]
  - Bundle branch block right [Unknown]
  - Malaise [Unknown]
  - Respiratory failure [Unknown]
  - Atrial fibrillation [Unknown]
  - Neoplasm [Fatal]
  - Septic shock [Unknown]

NARRATIVE: CASE EVENT DATE: 20160524
